FAERS Safety Report 5662475-X (Version None)
Quarter: 2008Q1

REPORT INFORMATION
  Report Type: 
  Country: None (occurrence: None)
  Receive Date: 20080310
  Receipt Date: 20080310
  Transmission Date: 20080703
  Serious: Yes (Hospitalization)
  Sender: FDA-Public Use
  Company Number: None

PATIENT
  Sex: Male
  Weight: 64.2 kg

DRUGS (2)
  1. CYTARABINE [Suspect]
     Dosage: 2401 MG
  2. DAUNORUBICIN HCL [Suspect]
     Dosage: 697.8 MG

REACTIONS (14)
  - ABDOMINAL DISTENSION [None]
  - BRONCHOPULMONARY ASPERGILLOSIS [None]
  - CARDIAC ARREST [None]
  - FUNGAL INFECTION [None]
  - HAEMOPTYSIS [None]
  - HYPOTENSION [None]
  - HYPOXIA [None]
  - LUNG INFILTRATION [None]
  - METABOLIC ACIDOSIS [None]
  - PLEURAL EFFUSION [None]
  - RASH [None]
  - RESPIRATORY DISORDER [None]
  - SPLENIC INFARCTION [None]
  - TACHYCARDIA [None]
